FAERS Safety Report 10763180 (Version 4)
Quarter: 2016Q2

REPORT INFORMATION
  Report Type: Spontaneous
  Country: DK (occurrence: DK)
  Receive Date: 20150204
  Receipt Date: 20160513
  Transmission Date: 20160815
  Serious: Yes (Other)
  Sender: FDA-Public Use
  Company Number: DK-PFIZER INC-2015042271

PATIENT
  Sex: Male
  Weight: 4 kg

DRUGS (1)
  1. MINPROSTIN [Suspect]
     Active Substance: DINOPROSTONE
     Indication: LABOUR INDUCTION
     Dosage: 6 MG (2 X 3MG WITH A 6 HOUR INTERVAL)
     Route: 064
     Dates: start: 20150102, end: 20150102

REACTIONS (1)
  - Foetal heart rate abnormal [Recovered/Resolved]

NARRATIVE: CASE EVENT DATE: 20150102
